FAERS Safety Report 20810030 (Version 2)
Quarter: 2022Q2

REPORT INFORMATION
  Report Type: Spontaneous
  Country: PT (occurrence: PT)
  Receive Date: 20220510
  Receipt Date: 20220523
  Transmission Date: 20220721
  Serious: Yes (Other)
  Sender: FDA-Public Use
  Company Number: PT-COLLEGIUM PHARMACEUTICAL, INC.-2022CGM00289

PATIENT
  Age: 83 Year
  Sex: Female

DRUGS (11)
  1. TAPENTADOL [Suspect]
     Active Substance: TAPENTADOL
     Indication: Pain
     Dosage: 50 MG, 1X/DAY
     Dates: start: 202203
  2. TAPENTADOL [Suspect]
     Active Substance: TAPENTADOL
     Dosage: 0.5 DOSAGE FORM, 1X/DAY
     Dates: start: 202204
  3. OMEPRAZOLE [Concomitant]
     Active Substance: OMEPRAZOLE
  4. IRBESARTAN [Concomitant]
     Active Substance: IRBESARTAN
  5. VOLTAREN [Concomitant]
     Active Substance: DICLOFENAC SODIUM
  6. ACETAMINOPHEN [Concomitant]
     Active Substance: ACETAMINOPHEN
  7. METAMIZOLE MAGNESIUM [Concomitant]
     Active Substance: METAMIZOLE MAGNESIUM
  8. CLOPIDOGREL [Concomitant]
     Active Substance: CLOPIDOGREL BISULFATE
  9. AMITRIPTYLINE HYDROCHLORIDE [Concomitant]
     Active Substance: AMITRIPTYLINE HYDROCHLORIDE
  10. GABAPENTIN [Concomitant]
     Active Substance: GABAPENTIN
  11. QUETIAPINE [Concomitant]
     Active Substance: QUETIAPINE

REACTIONS (3)
  - Pain in extremity [Recovered/Resolved]
  - Therapeutic product effect incomplete [Unknown]
  - Wrong technique in product usage process [Unknown]
